FAERS Safety Report 13242356 (Version 1)
Quarter: 2017Q1

REPORT INFORMATION
  Report Type: Spontaneous
  Country: IT (occurrence: IT)
  Receive Date: 20170216
  Receipt Date: 20170216
  Transmission Date: 20170428
  Serious: Yes (Hospitalization)
  Sender: FDA-Public Use
  Company Number: IT-BAXALTA-2017BLT001192

PATIENT
  Age: 7 Year
  Sex: Male
  Weight: 18 kg

DRUGS (3)
  1. CHLORPHENAMINE [Concomitant]
     Active Substance: CHLORPHENIRAMINE MALEATE
     Indication: LEUKAEMIA
     Dosage: UNK
     Route: 042
     Dates: start: 20170120, end: 20170126
  2. ONCASPAR [Suspect]
     Active Substance: PEGASPARGASE
     Indication: LEUKAEMIA
     Dosage: UNK
     Route: 042
     Dates: start: 20170125
  3. VINDESINE [Concomitant]
     Active Substance: VINDESINE
     Indication: LEUKAEMIA
     Dosage: UNK
     Route: 042
     Dates: start: 20170125, end: 20170125

REACTIONS (5)
  - Hypotension [Unknown]
  - Vomiting [Unknown]
  - Abdominal pain [Unknown]
  - Cough [Unknown]
  - Pallor [Unknown]

NARRATIVE: CASE EVENT DATE: 20170125
